FAERS Safety Report 20826907 (Version 1)
Quarter: 2022Q2

REPORT INFORMATION
  Report Type: Spontaneous
  Country: US (occurrence: None)
  Receive Date: 20220513
  Receipt Date: 20220513
  Transmission Date: 20220720
  Serious: Yes (Hospitalization)
  Sender: FDA-Public Use
  Company Number: None

PATIENT
  Sex: Male
  Weight: 62.1 kg

DRUGS (17)
  1. CISPLATIN [Suspect]
     Active Substance: CISPLATIN
     Dates: end: 20211101
  2. ACETAMINOPHEN [Concomitant]
     Active Substance: ACETAMINOPHEN
  3. ALBUTEROL [Concomitant]
     Active Substance: ALBUTEROL
  4. Amoxicillin-potassium [Concomitant]
  5. ASCORBIC ACID [Concomitant]
     Active Substance: ASCORBIC ACID
  6. CEFEPIME [Concomitant]
     Active Substance: CEFEPIME HYDROCHLORIDE
  7. VITAMINS [Concomitant]
     Active Substance: VITAMINS
  8. CHLORHEXIDINE [Concomitant]
     Active Substance: CHLORHEXIDINE
  9. Cyclobenaprine [Concomitant]
  10. Dexmede tomidine [Concomitant]
  11. DEXTROSE [Concomitant]
     Active Substance: DEXTROSE
  12. GABAPENTIN [Concomitant]
     Active Substance: GABAPENTIN
  13. GLUCAGON [Concomitant]
     Active Substance: GLUCAGON
  14. Heparin preservative free [Concomitant]
  15. INSULIN ASPART [Concomitant]
     Active Substance: INSULIN ASPART
  16. MELATONIN [Concomitant]
     Active Substance: MELATONIN
  17. THIAMINE [Concomitant]
     Active Substance: THIAMINE

REACTIONS (10)
  - Respiratory tract congestion [None]
  - Diarrhoea [None]
  - Septic shock [None]
  - Acute respiratory failure [None]
  - Pneumonia [None]
  - Hypovolaemia [None]
  - Lactic acidosis [None]
  - Acute kidney injury [None]
  - Pseudomonas test positive [None]
  - Bacillus test positive [None]

NARRATIVE: CASE EVENT DATE: 20220417
